FAERS Safety Report 7229168-9 (Version None)
Quarter: 2011Q1

REPORT INFORMATION
  Report Type: 
  Country: None (occurrence: None)
  Receive Date: 20110117
  Receipt Date: 20110110
  Transmission Date: 20110831
  Serious: Yes (Other)
  Sender: FDA-Public Use
  Company Number: FR-PFIZER INC-2010182371

PATIENT
  Age: 74 Year
  Sex: Female

DRUGS (7)
  1. LYRICA [Concomitant]
     Dosage: 75 MG, 2X/DAY
  2. SEREVENT [Concomitant]
     Dosage: 1 DF, 2X/DAY
  3. APROVEL [Concomitant]
     Dosage: 300 MG, 1X/DAY
  4. TOPALGIC [Concomitant]
     Dosage: 50 MG, 4X/DAY
     Route: 048
  5. ZYVOX [Suspect]
     Indication: SEPSIS
     Dosage: 600 MG, 2X/DAY
     Route: 048
     Dates: start: 20100720, end: 20100807
  6. FLIXOTIDE ^ALLEN + HANBURYS^ [Concomitant]
     Dosage: 2 DF, 2X/DAY
  7. TRANXENE [Concomitant]
     Dosage: 10 MG, AS NEEDED

REACTIONS (2)
  - TREMOR [None]
  - COORDINATION ABNORMAL [None]
